FAERS Safety Report 19622608 (Version 1)
Quarter: 2021Q3

REPORT INFORMATION
  Report Type: Spontaneous
  Country: DE (occurrence: DE)
  Receive Date: 20210728
  Receipt Date: 20210728
  Transmission Date: 20211014
  Serious: Yes (Other)
  Sender: FDA-Public Use
  Company Number: DE-ANIPHARMA-2021-DE-000167

PATIENT
  Sex: Female
  Weight: 51 kg

DRUGS (1)
  1. ARIMIDEX [Suspect]
     Active Substance: ANASTROZOLE
     Indication: BREAST CANCER METASTATIC
     Dosage: 1 DF QOD / 5 DF WEEK
     Route: 048

REACTIONS (6)
  - Off label use [Unknown]
  - Underdose [Unknown]
  - Muscular weakness [Unknown]
  - Depression [Unknown]
  - Impaired gastric emptying [Unknown]
  - Myalgia [Unknown]
